FAERS Safety Report 8063584-0 (Version None)
Quarter: 2011Q4

REPORT INFORMATION
  Report Type: 
  Country: None (occurrence: None)
  Receive Date: 20111220
  Receipt Date: 20110525
  Transmission Date: 20120403
  Serious: Yes (Other)
  Sender: FDA-Public Use
  Company Number: 2011000887

PATIENT
  Sex: Male

DRUGS (1)
  1. ACTIQ [Suspect]
     Dosage: (800 MGC, 2400 MCG DAILY), BU
     Route: 002
     Dates: end: 20110101

REACTIONS (2)
  - TOOTH FRACTURE [None]
  - TOOTH LOSS [None]
